FAERS Safety Report 22065857 (Version 1)
Quarter: 2023Q1

REPORT INFORMATION
  Report Type: Spontaneous
  Country: DE (occurrence: DE)
  Receive Date: 20230306
  Receipt Date: 20230306
  Transmission Date: 20230417
  Serious: Yes (Other)
  Sender: FDA-Public Use
  Company Number: DE-DEXPHARM-20230418

PATIENT
  Sex: Male

DRUGS (1)
  1. PERIOCHIP [Suspect]
     Active Substance: CHLORHEXIDINE GLUCONATE
     Dosage: IN TOTAL
     Route: 004

REACTIONS (3)
  - Application site necrosis [Recovered/Resolved]
  - Application site pain [Recovered/Resolved]
  - Gingival swelling [Recovered/Resolved]
